FAERS Safety Report 5515949-6 (Version None)
Quarter: 2007Q4

REPORT INFORMATION
  Report Type: 
  Country: None (occurrence: None)
  Receive Date: 20071114
  Receipt Date: 20071105
  Transmission Date: 20080405
  Serious: Yes (Hospitalization)
  Sender: FDA-Public Use
  Company Number: FR-ASTRAZENECA-2007CG01553

PATIENT
  Age: 26355 Day
  Sex: Male

DRUGS (11)
  1. MOPRAL [Suspect]
     Route: 048
  2. TRIFLUCAN [Suspect]
     Indication: FUNGAL INFECTION
     Route: 048
     Dates: start: 20070910, end: 20070925
  3. ROWASA [Suspect]
     Route: 048
  4. CHLORAMINOPHENE [Suspect]
     Indication: CHRONIC LYMPHOCYTIC LEUKAEMIA
     Route: 048
  5. CORTANCYL [Concomitant]
  6. PHLOROGLUCINOL [Concomitant]
  7. DIFFU K [Concomitant]
  8. CALCIDOSE VITAMINE D [Concomitant]
  9. LANSOYL [Concomitant]
  10. OLIGOSOL LITHIUM [Concomitant]
  11. PYOSTACINE [Concomitant]
     Indication: URINARY TRACT INFECTION
     Dates: start: 20070917, end: 20070928

REACTIONS (1)
  - AGRANULOCYTOSIS [None]
